FAERS Safety Report 5062629-X (Version None)
Quarter: 2006Q3

REPORT INFORMATION
  Report Type: 
  Country: None (occurrence: None)
  Receive Date: 20060724
  Receipt Date: 20050922
  Transmission Date: 20061208
  Serious: Yes (Hospitalization)
  Sender: FDA-Public Use
  Company Number: DE-2004-031094

PATIENT
  Age: 47 Year
  Sex: Female

DRUGS (2)
  1. INTERFERON BETA-1B VS PLACEBO (BETAFERON (SH Y 579E)) INJECTION, 250 U [Suspect]
     Indication: CARDIOMYOPATHY
     Dosage: SEE IMAGE
     Route: 058
     Dates: start: 20040408, end: 20040727
  2. INTERFERON BETA-1B VS PLACEBO (BETAFERON (SH Y 579E)) INJECTION, 250 U [Suspect]
     Indication: CARDIOMYOPATHY
     Dosage: SEE IMAGE
     Route: 058
     Dates: start: 20040810

REACTIONS (2)
  - GENITAL HAEMORRHAGE [None]
  - SYNCOPE [None]
